FAERS Safety Report 8517955-6 (Version None)
Quarter: 2012Q3

REPORT INFORMATION
  Report Type: 
  Country: None (occurrence: None)
  Receive Date: 20120718
  Receipt Date: 20120709
  Transmission Date: 20120928
  Serious: Yes (Other)
  Sender: FDA-Public Use
  Company Number: US-GENZYME-POMP-1002282

PATIENT
  Sex: Female

DRUGS (1)
  1. LUMIZYME [Suspect]
     Indication: GLYCOGEN STORAGE DISEASE TYPE II
     Dosage: 750 MG, UNK
     Route: 042
     Dates: start: 20120201

REACTIONS (4)
  - SWELLING FACE [None]
  - URTICARIA [None]
  - STEVENS-JOHNSON SYNDROME [None]
  - PHARYNGEAL OEDEMA [None]
